FAERS Safety Report 5177739-6 (Version None)
Quarter: 2006Q4

REPORT INFORMATION
  Report Type: 
  Country: None (occurrence: None)
  Receive Date: 20061218
  Receipt Date: 20061018
  Transmission Date: 20070319
  Serious: No
  Sender: FDA-Public Use
  Company Number: US-AMGEN-US197333

PATIENT
  Age: 13 Year
  Sex: Female

DRUGS (6)
  1. SENSIPAR [Suspect]
     Indication: HYPERPARATHYROIDISM SECONDARY
     Route: 065
     Dates: start: 20060901
  2. TUMS [Concomitant]
     Route: 065
  3. VITAMIN CAP [Concomitant]
     Route: 065
  4. NORVASC [Concomitant]
     Route: 065
  5. METOPROLOL SUCCINATE [Concomitant]
     Route: 065
  6. HECTORAL [Concomitant]
     Route: 065

REACTIONS (1)
  - VOMITING [None]
